FAERS Safety Report 21193785 (Version 1)
Quarter: 2022Q3

REPORT INFORMATION
  Report Type: Spontaneous
  Country: US (occurrence: US)
  Receive Date: 20220810
  Receipt Date: 20220810
  Transmission Date: 20221027
  Serious: No
  Sender: FDA-Public Use
  Company Number: US-GSK-US2022114810

PATIENT
  Sex: Female

DRUGS (1)
  1. FLOVENT HFA [Suspect]
     Active Substance: FLUTICASONE PROPIONATE
     Indication: Asthma
     Dosage: 4 PUFF(S), DAILY, 44 MCG

REACTIONS (6)
  - Dyspnoea [Unknown]
  - Dysphonia [Unknown]
  - Illness [Unknown]
  - Increased bronchial secretion [Unknown]
  - Expired product administered [Unknown]
  - Product dose omission issue [Unknown]
